FAERS Safety Report 13473460 (Version 1)
Quarter: 2017Q2

REPORT INFORMATION
  Report Type: Spontaneous
  Country: US (occurrence: US)
  Receive Date: 20170424
  Receipt Date: 20170424
  Transmission Date: 20170830
  Serious: Yes (Other)
  Sender: FDA-Public Use
  Company Number: US-ASTELLAS-2017US007374

PATIENT
  Age: 72 Year
  Sex: Male

DRUGS (2)
  1. LEXISCAN [Suspect]
     Active Substance: REGADENOSON
     Indication: BUNDLE BRANCH BLOCK RIGHT
  2. LEXISCAN [Suspect]
     Active Substance: REGADENOSON
     Indication: DYSPNOEA
     Dosage: 0.4MG/5ML, ONCE
     Route: 065
     Dates: start: 20170222, end: 20170222

REACTIONS (6)
  - Bradycardia [Recovered/Resolved]
  - Loss of consciousness [Recovered/Resolved]
  - Nausea [Recovered/Resolved]
  - Vomiting [Recovered/Resolved]
  - Cardiac arrest [Recovered/Resolved]
  - Fatigue [Recovered/Resolved]

NARRATIVE: CASE EVENT DATE: 20170222
